FAERS Safety Report 15468157 (Version 2)
Quarter: 2018Q4

REPORT INFORMATION
  Report Type: Report from Study
  Country: NL (occurrence: NL)
  Receive Date: 20181005
  Receipt Date: 20181108
  Transmission Date: 20190204
  Serious: Yes (Other)
  Sender: FDA-Public Use
  Company Number: NL-AUROBINDO-AUR-APL-2018-048676

PATIENT
  Age: 54 Year
  Sex: Female

DRUGS (4)
  1. CYCLOPHOSPHAMIDE. [Concomitant]
     Active Substance: CYCLOPHOSPHAMIDE
     Indication: DISORDER OF ORBIT
     Dosage: UNK
     Route: 065
  2. PREDNISONE TABLET [Suspect]
     Active Substance: PREDNISONE
     Indication: DISORDER OF ORBIT
     Dosage: UNK
     Route: 065
  3. PREDNISONE TABLET [Suspect]
     Active Substance: PREDNISONE
     Indication: IMMUNOGLOBULIN G4 RELATED DISEASE
  4. CYCLOPHOSPHAMIDE. [Concomitant]
     Active Substance: CYCLOPHOSPHAMIDE
     Indication: IMMUNOGLOBULIN G4 RELATED DISEASE

REACTIONS (4)
  - Therapeutic response decreased [Unknown]
  - Therapy partial responder [Unknown]
  - Rebound effect [Recovered/Resolved]
  - Immunoglobulin G4 related disease [Recovered/Resolved]
